FAERS Safety Report 7888833-0 (Version None)
Quarter: 2011Q4

REPORT INFORMATION
  Report Type: 
  Country: None (occurrence: None)
  Receive Date: 20111031
  Receipt Date: 20111017
  Transmission Date: 20120403
  Serious: Yes (Hospitalization)
  Sender: FDA-Public Use
  Company Number: 2010SP012520

PATIENT
  Age: 56 Year
  Sex: Male

DRUGS (9)
  1. VANCOMYCIN HYCHLORIDE [Concomitant]
  2. RAPAMUNE [Suspect]
     Indication: PRODUCT USED FOR UNKNOWN INDICATION
     Dosage: 2.0 MG;PO
     Route: 048
  3. TACROLIMUS [Suspect]
     Indication: PROPHYLAXIS AGAINST TRANSPLANT REJECTION
     Dates: start: 20080307
  4. SIROLIMUS (RAPAMUNE) [Suspect]
     Indication: PRODUCT USED FOR UNKNOWN INDICATION
  5. ALDACTONE [Concomitant]
  6. PEG-INTRON [Suspect]
     Indication: PRODUCT USED FOR UNKNOWN INDICATION
     Dosage: 180.0 MG;QW;SC ; 135.0 MG;QW;SC
     Route: 058
  7. FUROSEMIDE [Concomitant]
  8. RIBAVIRIN [Suspect]
     Indication: PRODUCT USED FOR UNKNOWN INDICATION
     Dosage: 400 MG;BID;PO
     Route: 048
  9. PANTOPRAZOLE SODIUM [Concomitant]

REACTIONS (4)
  - HAEMORRHAGE [None]
  - ANAEMIA [None]
  - MELAENA [None]
  - THROMBOCYTOPENIA [None]
